FAERS Safety Report 9434970 (Version 1)
Quarter: 2013Q3

REPORT INFORMATION
  Report Type: Spontaneous
  Country: IN (occurrence: None)
  Receive Date: 20130730
  Receipt Date: 20130730
  Transmission Date: 20140515
  Serious: Yes (Other)
  Sender: FDA-Public Use
  Company Number: 2013P1012943

PATIENT
  Sex: 0

DRUGS (1)
  1. NEVIRAPINE [Suspect]

REACTIONS (1)
  - Drug reaction with eosinophilia and systemic symptoms [None]
